FAERS Safety Report 14985252 (Version 1)
Quarter: 2018Q2

REPORT INFORMATION
  Report Type: Spontaneous
  Country: BR (occurrence: BR)
  Receive Date: 20180607
  Receipt Date: 20180607
  Transmission Date: 20180711
  Serious: Yes (Hospitalization, Other)
  Sender: FDA-Public Use
  Company Number: BR-NAPPMUNDI-GBR-2018-0056303

PATIENT
  Age: 66 Year
  Sex: Male

DRUGS (6)
  1. DIPYRONE [Concomitant]
     Active Substance: DIPYRONE
     Indication: PAIN
     Dosage: 45 DROP, Q6H
     Route: 048
  2. TRAMAL [Concomitant]
     Active Substance: TRAMADOL
     Indication: PAIN
     Route: 048
  3. OXYCONTIN [Suspect]
     Active Substance: OXYCODONE HYDROCHLORIDE
     Indication: PAIN
     Dosage: 2 TABLET, Q8H (10MG STRENGTH)
     Route: 048
     Dates: end: 20180517
  4. OXYCONTIN [Suspect]
     Active Substance: OXYCODONE HYDROCHLORIDE
     Dosage: 1 TABLET, Q8H
     Route: 048
  5. OXYCONTIN [Suspect]
     Active Substance: OXYCODONE HYDROCHLORIDE
     Dosage: 1.5 TABLET, Q8H  (STRENGHT 10MG)
     Route: 048
  6. SULFATO FERROSO [Concomitant]
     Indication: ANAEMIA

REACTIONS (5)
  - Anaemia [Unknown]
  - Pyrexia [Unknown]
  - Drug ineffective [Unknown]
  - Infection [Unknown]
  - Off label use [Unknown]
